FAERS Safety Report 17080346 (Version 1)
Quarter: 2019Q4

REPORT INFORMATION
  Report Type: Spontaneous
  Country: IN (occurrence: IN)
  Receive Date: 20191127
  Receipt Date: 20191127
  Transmission Date: 20200122
  Serious: Yes (Other)
  Sender: FDA-Public Use
  Company Number: IN-SUN PHARMACEUTICAL INDUSTRIES LTD-2019R1-216023

PATIENT
  Age: 46 Year
  Sex: Male
  Weight: 75 kg

DRUGS (1)
  1. LUPRIDE [Suspect]
     Active Substance: LEUPROLIDE ACETATE
     Indication: PROSTATE CANCER
     Dosage: 22.5 DOSE, 1DOSE/3MONTHS
     Route: 030
     Dates: start: 20181008, end: 20190709

REACTIONS (6)
  - Oedema [Not Recovered/Not Resolved]
  - Pain [Recovering/Resolving]
  - Injection site pain [Unknown]
  - Swelling [Recovering/Resolving]
  - Movement disorder [Recovering/Resolving]
  - Pyrexia [Recovered/Resolved]

NARRATIVE: CASE EVENT DATE: 20190709
